FAERS Safety Report 7816904-3 (Version None)
Quarter: 2011Q4

REPORT INFORMATION
  Report Type: 
  Country: None (occurrence: None)
  Receive Date: 20111017
  Receipt Date: 20111006
  Transmission Date: 20120403
  Serious: No
  Sender: FDA-Public Use
  Company Number: US-PFIZER INC-2011239522

PATIENT
  Age: 77 Year
  Sex: Male

DRUGS (1)
  1. CLEOCIN HYDROCHLORIDE [Suspect]
     Indication: TOOTH EXTRACTION
     Dosage: UNK
     Dates: start: 20110901, end: 20110930

REACTIONS (3)
  - URTICARIA [None]
  - PRURITUS [None]
  - RASH [None]
